FAERS Safety Report 8821588 (Version 1)
Quarter: 2012Q4

REPORT INFORMATION
  Report Type: 
  Country: US (occurrence: US)
  Receive Date: 20121002
  Receipt Date: 20121002
  Transmission Date: 20130627
  Serious: No
  Sender: FDA-Public Use
  Company Number: US-VERTEX PHARMACEUTICAL INC.-2012-020790

PATIENT

DRUGS (7)
  1. INCIVEK [Suspect]
     Indication: HEPATITIS C
     Dosage: 750 mg, tid
     Route: 048
     Dates: start: 20120817
  2. PEGASYS [Suspect]
     Indication: HEPATITIS C
     Dosage: 180 ?g, UNK
     Route: 058
     Dates: start: 20120817
  3. RIBAVIRIN [Suspect]
     Indication: HEPATITIS C
     Dosage: UNK, bid
     Route: 048
     Dates: start: 20120817, end: 20120824
  4. RIBAVIRIN [Suspect]
     Dosage: UNK, bid
     Route: 048
     Dates: start: 20120824
  5. HYDROXYZINE [Concomitant]
     Indication: RASH PRURITIC
     Dosage: 25 mg, qd
     Route: 048
  6. CITALOPRAM [Concomitant]
     Indication: DEPRESSION
     Dosage: 20 mg, qd
     Route: 048
     Dates: end: 20120831
  7. CITALOPRAM [Concomitant]
     Dosage: 30 mg, qd
     Route: 048
     Dates: start: 20120831

REACTIONS (7)
  - Agitation [Not Recovered/Not Resolved]
  - Dry throat [Not Recovered/Not Resolved]
  - Fatigue [Not Recovered/Not Resolved]
  - Rash generalised [Not Recovered/Not Resolved]
  - Diarrhoea [Recovered/Resolved]
  - Anorectal discomfort [Recovered/Resolved]
  - Nausea [Recovered/Resolved]
